FAERS Safety Report 8241945-4 (Version None)
Quarter: 2012Q1

REPORT INFORMATION
  Report Type: 
  Country: None (occurrence: None)
  Receive Date: 20120329
  Receipt Date: 20120322
  Transmission Date: 20120608
  Serious: Yes (Hospitalization)
  Sender: FDA-Public Use
  Company Number: US-BIOGENIDEC-2010BI009388

PATIENT
  Age: 63 Year
  Sex: Male

DRUGS (1)
  1. TYSABRI [Suspect]
     Indication: MULTIPLE SCLEROSIS
     Route: 042
     Dates: start: 20081219, end: 20120125

REACTIONS (11)
  - URINARY TRACT INFECTION [None]
  - PROSTATIC DISORDER [None]
  - TRIGEMINAL NEURALGIA [None]
  - BLADDER NEOPLASM [None]
  - DENTAL CARIES [None]
  - LIGAMENT SPRAIN [None]
  - NEPHROLITHIASIS [None]
  - MUSCLE ATROPHY [None]
  - LOWER LIMB FRACTURE [None]
  - PROSTATIC OPERATION [None]
  - MEMORY IMPAIRMENT [None]
